FAERS Safety Report 7076221-9 (Version None)
Quarter: 2010Q4

REPORT INFORMATION
  Report Type: 
  Country: None (occurrence: None)
  Receive Date: 20101101
  Receipt Date: 20101021
  Transmission Date: 20110411
  Serious: Yes (Death)
  Sender: FDA-Public Use
  Company Number: AU-CELGENEUS-008-20785-10102088

PATIENT
  Sex: Female
  Weight: 85 kg

DRUGS (1)
  1. THALOMID [Suspect]
     Route: 048
     Dates: start: 20100715, end: 20100907

REACTIONS (4)
  - ANAEMIA [None]
  - RENAL FAILURE [None]
  - RESPIRATORY FAILURE [None]
  - SEPSIS [None]
